FAERS Safety Report 16545403 (Version 2)
Quarter: 2019Q3

REPORT INFORMATION
  Report Type: Spontaneous
  Country: PT (occurrence: PT)
  Receive Date: 20190709
  Receipt Date: 20190810
  Transmission Date: 20191004
  Serious: Yes (Other)
  Sender: FDA-Public Use
  Company Number: PT-009507513-1907PRT003873

PATIENT
  Age: 40 Year
  Sex: Female

DRUGS (1)
  1. DIPROFOS DEPOT [Suspect]
     Active Substance: BETAMETHASONE DIPROPIONATE\BETAMETHASONE SODIUM PHOSPHATE
     Dosage: SINGLE INFILTRATION
     Dates: start: 20190703, end: 2019

REACTIONS (1)
  - Drug hypersensitivity [Recovering/Resolving]

NARRATIVE: CASE EVENT DATE: 20190704
